FAERS Safety Report 19908369 (Version 1)
Quarter: 2021Q4

REPORT INFORMATION
  Report Type: Report from Study
  Country: US (occurrence: US)
  Receive Date: 20211001
  Receipt Date: 20211001
  Transmission Date: 20220303
  Serious: Yes (Other)
  Sender: FDA-Public Use
  Company Number: US-BAYER-2021-205105

PATIENT
  Age: 94 Year
  Sex: Male

DRUGS (1)
  1. XOFIGO [Suspect]
     Active Substance: RADIUM RA-223 DICHLORIDE
     Indication: Hormone-refractory prostate cancer
     Dosage: 108.10 ?CI, UNK
     Dates: start: 20210728, end: 20210728

REACTIONS (2)
  - Full blood count abnormal [Unknown]
  - Hypertension [None]

NARRATIVE: CASE EVENT DATE: 20210902
